FAERS Safety Report 4654926-4 (Version None)
Quarter: 2005Q2

REPORT INFORMATION
  Report Type: 
  Country: None (occurrence: None)
  Receive Date: 20050506
  Receipt Date: 20050117
  Transmission Date: 20051028
  Serious: Yes (Death)
  Sender: FDA-Public Use
  Company Number: US-MERCK-0501USA02846

PATIENT
  Age: 53 Year
  Sex: Male
  Weight: 120 kg

DRUGS (1)
  1. VIOXX [Suspect]
     Indication: ARTHRALGIA
     Route: 048
     Dates: start: 20001231, end: 20010130

REACTIONS (2)
  - ACUTE MYOCARDIAL INFARCTION [None]
  - VENTRICULAR ARRHYTHMIA [None]
